FAERS Safety Report 7941419-1 (Version None)
Quarter: 2011Q4

REPORT INFORMATION
  Report Type: 
  Country: None (occurrence: None)
  Receive Date: 20111128
  Receipt Date: 20110622
  Transmission Date: 20120403
  Serious: No
  Sender: FDA-Public Use
  Company Number: US-MYLANLABS-2011S1013242

PATIENT
  Sex: Female

DRUGS (1)
  1. CLONIDINE [Suspect]

REACTIONS (3)
  - FEELING ABNORMAL [None]
  - DRUG INEFFECTIVE [None]
  - SOMNOLENCE [None]
